FAERS Safety Report 6163243-5 (Version None)
Quarter: 2009Q2

REPORT INFORMATION
  Report Type: 
  Country: None (occurrence: None)
  Receive Date: 20090422
  Receipt Date: 20080325
  Transmission Date: 20091009
  Serious: No
  Sender: FDA-Public Use
  Company Number: A0719011A

PATIENT
  Sex: Female

DRUGS (1)
  1. COMPAZINE [Suspect]
     Indication: DRUG USE FOR UNKNOWN INDICATION
     Route: 065

REACTIONS (3)
  - EYE ROLLING [None]
  - HYPERSENSITIVITY [None]
  - MUSCLE RIGIDITY [None]
